FAERS Safety Report 25943538 (Version 1)
Quarter: 2025Q4

REPORT INFORMATION
  Report Type: Spontaneous
  Country: JP (occurrence: JP)
  Receive Date: 20251021
  Receipt Date: 20251021
  Transmission Date: 20260118
  Serious: Yes (Death, Hospitalization, Other)
  Sender: AMGEN
  Company Number: JP-AMGEN-JPNSP2025204978

PATIENT

DRUGS (1)
  1. TRASTUZUMAB [Suspect]
     Active Substance: TRASTUZUMAB
     Indication: Breast cancer
     Dosage: UNK
     Route: 065

REACTIONS (9)
  - Breast cancer [Fatal]
  - Cardiotoxicity [Unknown]
  - Cardiac failure [Unknown]
  - Arrhythmia [Unknown]
  - Troponin increased [Unknown]
  - Left ventricular dilatation [Unknown]
  - Right ventricular dysfunction [Unknown]
  - Heart rate increased [Recovered/Resolved]
  - Left ventricular dysfunction [Unknown]
